FAERS Safety Report 14337183 (Version 1)
Quarter: 2017Q4

REPORT INFORMATION
  Report Type: Spontaneous
  Country: AT (occurrence: AT)
  Receive Date: 20171229
  Receipt Date: 20171229
  Transmission Date: 20180321
  Serious: Yes (Hospitalization, Other)
  Sender: FDA-Public Use
  Company Number: AT-ASTRAZENECA-2017SF01127

PATIENT
  Age: 67 Year
  Sex: Female

DRUGS (44)
  1. SEROQUEL [Suspect]
     Active Substance: QUETIAPINE FUMARATE
     Dosage: 175.0MG UNKNOWN
     Route: 048
     Dates: start: 20170620, end: 20170620
  2. LEPONEX [Suspect]
     Active Substance: CLOZAPINE
     Dosage: 200.0MG UNKNOWN
     Route: 065
     Dates: end: 2016
  3. LEPONEX [Suspect]
     Active Substance: CLOZAPINE
     Dosage: 1-1-1-1 UNKNOWN
     Route: 065
     Dates: start: 2017
  4. RISPERDAL [Concomitant]
     Active Substance: RISPERIDONE
     Dates: start: 20170703, end: 20170704
  5. LOVENOX [Concomitant]
     Active Substance: ENOXAPARIN SODIUM
     Dates: start: 20170621, end: 20170729
  6. ABILIFY [Concomitant]
     Active Substance: ARIPIPRAZOLE
     Dates: start: 20170725, end: 20170726
  7. SEROQUEL [Suspect]
     Active Substance: QUETIAPINE FUMARATE
     Dosage: 250.0MG UNKNOWN
     Route: 048
     Dates: start: 20170619, end: 20170619
  8. LEPONEX [Suspect]
     Active Substance: CLOZAPINE
     Dosage: 350.0MG UNKNOWN
     Route: 065
     Dates: start: 20170620, end: 20170620
  9. SERTRALINE [Suspect]
     Active Substance: SERTRALINE HYDROCHLORIDE
     Route: 065
     Dates: start: 20170614, end: 20170619
  10. PRAXITEN [Concomitant]
     Active Substance: OXAZEPAM
     Dates: start: 20170614, end: 20170616
  11. PRAXITEN [Concomitant]
     Active Substance: OXAZEPAM
     Dates: start: 20170619, end: 20170620
  12. PRAXITEN [Concomitant]
     Active Substance: OXAZEPAM
     Dates: start: 20170701, end: 20170704
  13. LAEVOLAC [Concomitant]
     Active Substance: LACTULOSE
     Dates: start: 20170723
  14. ABILIFY [Concomitant]
     Active Substance: ARIPIPRAZOLE
     Dates: start: 20170727
  15. SEROQUEL [Suspect]
     Active Substance: QUETIAPINE FUMARATE
     Dosage: 400.0MG UNKNOWN
     Route: 048
     Dates: end: 2016
  16. LEPONEX [Suspect]
     Active Substance: CLOZAPINE
     Dosage: 100MG 1-1-0-1 UNKNOWN
     Route: 065
     Dates: start: 2016
  17. PRAXITEN [Concomitant]
     Active Substance: OXAZEPAM
     Dosage: 1-1-1-0
  18. PRAXITEN [Concomitant]
     Active Substance: OXAZEPAM
     Dates: start: 20170617, end: 20170617
  19. PRAXITEN [Concomitant]
     Active Substance: OXAZEPAM
     Dates: start: 20170626, end: 20170630
  20. PRAXITEN [Concomitant]
     Active Substance: OXAZEPAM
     Dates: start: 20170705, end: 20170706
  21. RISPERDAL [Concomitant]
     Active Substance: RISPERIDONE
     Dates: start: 20170630, end: 20170630
  22. TEMESTA (LORAZEPAM) [Concomitant]
     Active Substance: LORAZEPAM
     Dates: start: 20170707, end: 20170719
  23. SEROQUEL [Suspect]
     Active Substance: QUETIAPINE FUMARATE
     Dosage: 400.0MG UNKNOWN
     Route: 048
     Dates: start: 20170614, end: 20170616
  24. AKINETON [Suspect]
     Active Substance: BIPERIDEN HYDROCHLORIDE
     Indication: HYPERKINESIA
     Dosage: 4.0MG UNKNOWN
     Dates: start: 20170614, end: 20170622
  25. PANTOLOC [Concomitant]
     Active Substance: PANTOPRAZOLE SODIUM
     Dates: start: 20170614, end: 20170707
  26. RISPERDAL [Concomitant]
     Active Substance: RISPERIDONE
     Dates: start: 20170626, end: 20170629
  27. TEMESTA (LORAZEPAM) [Concomitant]
     Active Substance: LORAZEPAM
     Dosage: 0-0-01
  28. AKINETON [Suspect]
     Active Substance: BIPERIDEN HYDROCHLORIDE
     Indication: HYPERKINESIA
     Dosage: 4.0MG UNKNOWN
     Dates: start: 20170703, end: 20170707
  29. PRAXITEN [Concomitant]
     Active Substance: OXAZEPAM
     Dates: start: 20170621, end: 20170625
  30. RISPERDAL [Concomitant]
     Active Substance: RISPERIDONE
     Dates: start: 20170705, end: 20170705
  31. SEROQUEL [Suspect]
     Active Substance: QUETIAPINE FUMARATE
     Dosage: 700.0MG UNKNOWN
     Route: 048
     Dates: start: 2016
  32. SEROQUEL [Suspect]
     Active Substance: QUETIAPINE FUMARATE
     Dosage: 200MG 0-0-0-1, 100MG 1-1-0-1 UNKNOWN
     Route: 048
     Dates: start: 2016
  33. SEROQUEL [Suspect]
     Active Substance: QUETIAPINE FUMARATE
     Dosage: 300.0MG UNKNOWN
     Route: 048
     Dates: start: 20170617, end: 20170618
  34. LEPONEX [Suspect]
     Active Substance: CLOZAPINE
     Dosage: 400.0MG UNKNOWN
     Route: 065
     Dates: start: 20170614, end: 20170619
  35. GLUCOPHAGE [Concomitant]
     Active Substance: METFORMIN HYDROCHLORIDE
     Dates: start: 20170614, end: 20170703
  36. PRAXITEN [Concomitant]
     Active Substance: OXAZEPAM
     Dates: start: 20170618, end: 20170618
  37. RISPERDAL [Concomitant]
     Active Substance: RISPERIDONE
     Dates: start: 20170701, end: 20170702
  38. CALCIUM GLYCEROPHOSPHATE\CELLULOSE\POLYETHYLENE GLYCOL\SACCHARIN SODIUM\SODIUM HYDROXIDE\SODIUM LAURYL SULFATE\SODIUM MAGNESIUM SILICATE\SODIUM MONOFLUOROPHOSPHATE\SORBITOL\WATER [Concomitant]
     Active Substance: CALCIUM GLYCEROPHOSPHATE\POLYETHYLENE GLYCOLS\POWDERED CELLULOSE\SACCHARIN SODIUM DIHYDRATE\SODIUM HYDROXIDE\SODIUM LAURYL SULFATE\SODIUM MAGNESIUM SILICATE\SODIUM MONOFLUOROPHOSPHATE\SORBITOL\WATER
     Dosage: 1 SAC DAILY
     Dates: start: 20170614, end: 20170707
  39. NACL [Concomitant]
     Active Substance: SODIUM CHLORIDE
     Dates: start: 20170614, end: 20170620
  40. RISPERDAL [Concomitant]
     Active Substance: RISPERIDONE
     Dates: start: 20170706, end: 20170706
  41. SELEXID (PEVMECILLINAM HYDROCHLORIDE) [Concomitant]
     Active Substance: AMDINOCILLIN PIVOXIL HYDROCHLORIDE
     Dates: start: 20170627, end: 20170630
  42. TEMESTA (LORAZEPAM) [Concomitant]
     Active Substance: LORAZEPAM
     Dates: start: 20170720
  43. AMANTADINE SULFATE [Concomitant]
     Active Substance: AMANTADINE SULFATE
     Dates: start: 20170708, end: 20170719
  44. AKINETON [Suspect]
     Active Substance: BIPERIDEN HYDROCHLORIDE
     Indication: HYPERKINESIA
     Dosage: 10.0MG UNKNOWN

REACTIONS (4)
  - Underdose [Unknown]
  - Extrapyramidal disorder [Recovered/Resolved]
  - Wrong technique in product usage process [Unknown]
  - Delirium [Recovered/Resolved]

NARRATIVE: CASE EVENT DATE: 20170616
